FAERS Safety Report 23668669 (Version 1)
Quarter: 2024Q1

REPORT INFORMATION
  Report Type: Spontaneous
  Country: US (occurrence: None)
  Receive Date: 20240323
  Receipt Date: 20240323
  Transmission Date: 20240410
  Serious: Yes (Death, Hospitalization)
  Sender: FDA-Public Use
  Company Number: None

PATIENT
  Age: 69 Year
  Sex: Female
  Weight: 112.5 kg

DRUGS (8)
  1. TAMOXIFEN [Suspect]
     Active Substance: TAMOXIFEN
     Indication: Breast cancer female
     Dosage: OTHER QUANTITY : 1 TABLET(S);?FREQUENCY : DAILY;?
     Route: 048
     Dates: start: 20230823, end: 20231122
  2. ALENDRONATE [Concomitant]
     Active Substance: ALENDRONATE SODIUM
  3. APIXABAN [Concomitant]
     Active Substance: APIXABAN
  4. ATENOLOL [Concomitant]
     Active Substance: ATENOLOL
  5. hydrochlorothiazide tramadol [Concomitant]
  6. FERROUS SULFATE [Concomitant]
     Active Substance: FERROUS SULFATE
  7. LORATADINE [Concomitant]
     Active Substance: LORATADINE
  8. cheleated magnesium [Concomitant]

REACTIONS (7)
  - Shock [None]
  - Hepatic failure [None]
  - Renal failure [None]
  - Liver injury [None]
  - Dialysis [None]
  - Hypotension [None]
  - Illness [None]

NARRATIVE: CASE EVENT DATE: 20231113
